FAERS Safety Report 6715910-X (Version None)
Quarter: 2010Q2

REPORT INFORMATION
  Report Type: 
  Country: None (occurrence: None)
  Receive Date: 20100507
  Receipt Date: 20100428
  Transmission Date: 20101027
  Serious: Yes (Hospitalization)
  Sender: FDA-Public Use
  Company Number: PHHY2010FR27562

PATIENT
  Sex: Female

DRUGS (11)
  1. TEGRETOL [Suspect]
     Dosage: 200 MG, TID
  2. TEGRETOL [Suspect]
     Dosage: 400 MG, TID
     Dates: start: 20091123, end: 20091127
  3. TEGRETOL [Suspect]
     Dosage: 400 MG (MORNING) + 200 MG (MIDDAY) + 400 MG (EVENING), DAILY
     Dates: start: 20091127, end: 20091128
  4. TEGRETOL [Suspect]
     Dosage: 400 MG, TID
     Dates: start: 20091128, end: 20091130
  5. TEGRETOL [Suspect]
     Dosage: 1000 MG/DAY
     Dates: start: 20091130
  6. LYRICA [Suspect]
     Dosage: 75 MG, BID
     Route: 048
     Dates: end: 20091208
  7. NEURONTIN [Suspect]
     Dosage: 300 MG, TID
     Route: 048
     Dates: end: 20091208
  8. FLUDEX [Suspect]
     Dosage: 1.5 MG, UNK
     Route: 048
     Dates: end: 20091208
  9. RIVOTRIL [Concomitant]
  10. ATACAND [Concomitant]
  11. LEVOTHYROXINE SODIUM [Concomitant]
     Dosage: 27 DROPS/DAY

REACTIONS (8)
  - HYPOCHLORAEMIA [None]
  - HYPOKALAEMIA [None]
  - HYPONATRAEMIA [None]
  - NAUSEA [None]
  - NEURALGIA [None]
  - NEUTROPENIA [None]
  - PAIN [None]
  - VOMITING [None]
